FAERS Safety Report 11241778 (Version 1)
Quarter: 2015Q3

REPORT INFORMATION
  Report Type: Spontaneous
  Country: JP (occurrence: JP)
  Receive Date: 20150706
  Receipt Date: 20150706
  Transmission Date: 20151125
  Serious: Yes (Hospitalization)
  Sender: FDA-Public Use
  Company Number: PHHY2015JP078494

PATIENT
  Age: 54 Year
  Sex: Female

DRUGS (1)
  1. OXALIPLATIN. [Suspect]
     Active Substance: OXALIPLATIN
     Indication: CHEMOTHERAPY
     Route: 065

REACTIONS (4)
  - Balance disorder [Recovered/Resolved]
  - Haemolytic anaemia [Recovered/Resolved]
  - Malaise [Recovered/Resolved]
  - Renal failure [Recovered/Resolved]
